FAERS Safety Report 24255022 (Version 1)
Quarter: 2024Q3

REPORT INFORMATION
  Report Type: Spontaneous
  Country: CA (occurrence: CA)
  Receive Date: 20240827
  Receipt Date: 20240827
  Transmission Date: 20241017
  Serious: Yes (Other)
  Sender: ANI
  Company Number: CA-ANIPHARMA-2020-CA-001577

PATIENT
  Age: 77 Year
  Sex: Female

DRUGS (2)
  1. ANASTROZOLE [Suspect]
     Active Substance: ANASTROZOLE
     Indication: Product used for unknown indication
     Route: 048
     Dates: start: 2001, end: 2006
  2. PACLITAXEL [Suspect]
     Active Substance: PACLITAXEL
     Route: 048
     Dates: start: 20011101

REACTIONS (2)
  - Brain injury [Unknown]
  - Metastatic neoplasm [Unknown]
